FAERS Safety Report 4313343-7 (Version None)
Quarter: 2004Q1

REPORT INFORMATION
  Report Type: 
  Country: None (occurrence: None)
  Receive Date: 20040304
  Receipt Date: 20040218
  Transmission Date: 20041129
  Serious: Yes (Other)
  Sender: FDA-Public Use
  Company Number: 2004-DE-00783GD

PATIENT
  Age: 30 Year
  Sex: Male

DRUGS (15)
  1. CYCLOPHOSPHAMIDE [Suspect]
     Indication: BURKITT'S LYMPHOMA
     Dosage: 8 CYCLES OF HYPER-CVAD COMBINED WITH RITUXIMAB
  2. CYCLOPHOSPHAMIDE [Suspect]
     Indication: LYMPHADENOPATHY
     Dosage: 8 CYCLES OF HYPER-CVAD COMBINED WITH RITUXIMAB
  3. METHOTREXATE [Suspect]
     Indication: BURKITT'S LYMPHOMA
     Dosage: 8 CYCLES OF HYPER-CVAD COMBINED WITH RITUXIMAB
  4. METHOTREXATE [Suspect]
     Indication: LYMPHADENOPATHY
     Dosage: 8 CYCLES OF HYPER-CVAD COMBINED WITH RITUXIMAB
  5. VINCRISTINE [Suspect]
     Indication: BURKITT'S LYMPHOMA
     Dosage: 8 CYCLES OF HYPER-CVAD COMBINED WITH RITUXIMAB
  6. VINCRISTINE [Suspect]
     Indication: LYMPHADENOPATHY
     Dosage: 8 CYCLES OF HYPER-CVAD COMBINED WITH RITUXIMAB
  7. DOXORUBICIN HCL [Suspect]
     Indication: BURKITT'S LYMPHOMA
     Dosage: 8 CYCLES OF HYPER-CVAD COMBINED WITH RITUXIMAB
  8. DOXORUBICIN HCL [Suspect]
     Indication: LYMPHADENOPATHY
     Dosage: 8 CYCLES OF HYPER-CVAD COMBINED WITH RITUXIMAB
  9. DEXAMETHASONE [Suspect]
     Indication: BURKITT'S LYMPHOMA
     Dosage: 8 CYCLES OF HYPER-CVAD COMBINED WITH RITUXIMAB
  10. DEXAMETHASONE [Suspect]
     Indication: LYMPHADENOPATHY
     Dosage: 8 CYCLES OF HYPER-CVAD COMBINED WITH RITUXIMAB
  11. CYTARABINE [Suspect]
     Indication: BURKITT'S LYMPHOMA
     Dosage: 8 CYCLES OF HYPER-CVAD COMBINED WITH RITUXIMAB
  12. CYTARABINE [Suspect]
     Indication: LYMPHADENOPATHY
     Dosage: 8 CYCLES OF HYPER-CVAD COMBINED WITH RITUXIMAB
  13. RITUXIMAB (RITUXIMAB) [Suspect]
     Indication: BURKITT'S LYMPHOMA
     Dosage: 8 CYCLES OF HYPER-CVAD COMBINED WITH RITUXIMAB
  14. RITUXIMAB (RITUXIMAB) [Suspect]
     Indication: LYMPHADENOPATHY
     Dosage: 8 CYCLES OF HYPER-CVAD COMBINED WITH RITUXIMAB
  15. GRANULOCYTE COLONY STIMULATING FACTOR (GRANULOCYTE COLONY STIMULATING [Concomitant]

REACTIONS (5)
  - BLOOD IMMUNOGLOBULIN G DECREASED [None]
  - BONE MARROW DEPRESSION [None]
  - HYPOGAMMAGLOBULINAEMIA [None]
  - NEUTROPENIA [None]
  - UPPER RESPIRATORY TRACT INFECTION [None]
